FAERS Safety Report 10978943 (Version 1)
Quarter: 2015Q1

REPORT INFORMATION
  Report Type: Spontaneous
  Country: US (occurrence: None)
  Receive Date: 20150227
  Receipt Date: 20150227
  Transmission Date: 20150721
  Serious: Yes (Disabling)
  Sender: FDA-Public Use
  Company Number: 2168561

PATIENT
  Age: 59 Year
  Sex: Female

DRUGS (1)
  1. FENTANYL CITRATE INJECTION, USP [Suspect]
     Active Substance: FENTANYL CITRATE
     Indication: PRODUCT USED FOR UNKNOWN INDICATION
     Route: 050

REACTIONS (3)
  - Accident at work [None]
  - Product container issue [None]
  - Laceration [None]

NARRATIVE: CASE EVENT DATE: 20140128
